FAERS Safety Report 5708284-4 (Version None)
Quarter: 2008Q2

REPORT INFORMATION
  Report Type: 
  Country: None (occurrence: None)
  Receive Date: 20080417
  Receipt Date: 20080408
  Transmission Date: 20081010
  Serious: Yes (Death)
  Sender: FDA-Public Use
  Company Number: DE-MERCK-0801DEU00097

PATIENT
  Age: 58 Year
  Sex: Male

DRUGS (35)
  1. PRIMAXIN [Suspect]
     Route: 042
     Dates: start: 20031017, end: 20031028
  2. FLUIMUCIL [Concomitant]
     Route: 042
     Dates: start: 20031002, end: 20031017
  3. INSULIN [Concomitant]
     Indication: DIABETES MELLITUS
     Route: 058
     Dates: start: 20031003, end: 20031023
  4. DIPIDOLOR [Concomitant]
     Indication: PAIN
     Route: 042
     Dates: start: 20031029, end: 20031029
  5. DEXTROSE [Concomitant]
     Route: 041
     Dates: start: 20031026, end: 20031029
  6. HEPARIN [Suspect]
     Indication: THROMBOSIS PROPHYLAXIS
     Route: 051
     Dates: start: 20031003
  7. LACTULOSE [Concomitant]
     Route: 048
     Dates: start: 20031004, end: 20031026
  8. CIPRO [Suspect]
     Indication: INFECTION
     Route: 042
     Dates: start: 20031004, end: 20031017
  9. CIPRO [Suspect]
     Route: 042
     Dates: start: 20031026, end: 20031028
  10. SAB SIMPLEX [Suspect]
     Indication: CONSTIPATION
     Route: 048
     Dates: start: 20031018
  11. CARVEDILOL [Suspect]
     Indication: CARDIAC FAILURE CONGESTIVE
     Route: 048
     Dates: start: 20031012
  12. REFOBACIN [Concomitant]
     Indication: EXOPHTHALMOS
     Route: 047
     Dates: start: 20031009, end: 20031024
  13. CORNEREGEL [Concomitant]
     Indication: EXOPHTHALMOS
     Route: 047
     Dates: start: 20031009
  14. NEOMYCIN [Suspect]
     Indication: GASTROINTESTINAL DISORDER
     Route: 048
     Dates: start: 20031011
  15. KLACID [Suspect]
     Indication: INFECTION
     Route: 048
     Dates: start: 20031015
  16. CLONT [Concomitant]
     Indication: INFECTION
     Route: 042
     Dates: start: 20031028
  17. AMINO ACIDS (UNSPECIFIED) AND DEXTROSE [Concomitant]
     Route: 042
     Dates: start: 20031016, end: 20031023
  18. PANTOZOL [Suspect]
     Indication: PROPHYLAXIS AGAINST GASTROINTESTINAL ULCER
     Route: 048
     Dates: start: 20031016
  19. DICLOFENAC [Suspect]
     Indication: PAIN
     Route: 065
     Dates: start: 20031017, end: 20031018
  20. VANCOMYCIN [Suspect]
     Route: 042
     Dates: start: 20031017, end: 20031022
  21. COLCHICINE [Suspect]
     Indication: PERICARDIAL EFFUSION
     Route: 048
     Dates: start: 20031017, end: 20031018
  22. COLCHICINE [Suspect]
     Route: 048
     Dates: start: 20031020, end: 20031029
  23. BEPANTHEN [Concomitant]
     Indication: CONJUNCTIVAL HAEMORRHAGE
     Route: 047
     Dates: start: 20031018, end: 20031024
  24. SOLU-DECORTIN-H [Concomitant]
     Route: 042
     Dates: start: 20031019, end: 20031019
  25. VIOXX [Concomitant]
     Indication: PAIN
     Route: 048
     Dates: start: 20031019, end: 20031020
  26. FORTIMEL [Concomitant]
     Indication: PARENTERAL NUTRITION
     Route: 042
     Dates: start: 20031028
  27. GELAFUNDIN [Concomitant]
     Route: 042
     Dates: start: 20031029, end: 20031029
  28. AMINO ACIDS (UNSPECIFIED) [Concomitant]
     Indication: PARENTERAL NUTRITION
     Route: 042
     Dates: start: 20031019
  29. ALBUMIN HUMAN [Concomitant]
     Route: 042
     Dates: start: 20031030, end: 20031030
  30. HETASTARCH IN SODIUM CHLORIDE [Concomitant]
     Route: 042
     Dates: start: 20031030, end: 20031030
  31. DOPAMINE HYDROCHLORIDE [Concomitant]
     Route: 042
     Dates: start: 20031030
  32. LIPOVENOS [Concomitant]
     Indication: PARENTERAL NUTRITION
     Route: 042
     Dates: start: 20031030
  33. ADDEL N [Concomitant]
     Route: 042
     Dates: start: 20031030
  34. SOLUVIT [Concomitant]
     Route: 042
     Dates: start: 20031030
  35. VITALIPID [Concomitant]
     Indication: PARENTERAL NUTRITION
     Route: 042
     Dates: start: 20031030

REACTIONS (1)
  - STEVENS-JOHNSON SYNDROME [None]
